FAERS Safety Report 6803657-0 (Version None)
Quarter: 2010Q2

REPORT INFORMATION
  Report Type: 
  Country: None (occurrence: None)
  Receive Date: 20100628
  Receipt Date: 20100618
  Transmission Date: 20101027
  Serious: Yes (Life-Threatening, Other)
  Sender: FDA-Public Use
  Company Number: DE-ABBOTT-10P-062-0652679-00

PATIENT
  Sex: Female

DRUGS (2)
  1. HUMIRA [Suspect]
     Indication: PSORIASIS
     Route: 058
     Dates: start: 20090204, end: 20100501
  2. METHOTREXATE SODIUM [Concomitant]
     Indication: PSORIASIS
     Dates: end: 20090201

REACTIONS (4)
  - LYMPHADENOPATHY [None]
  - METASTASES TO LIVER [None]
  - METASTASIS [None]
  - PSORIASIS [None]
